FAERS Safety Report 13833959 (Version 1)
Quarter: 2017Q3

REPORT INFORMATION
  Report Type: Spontaneous
  Country: US (occurrence: US)
  Receive Date: 20170804
  Receipt Date: 20170804
  Transmission Date: 20171127
  Serious: No
  Sender: FDA-Public Use
  Company Number: US-BRISTOL-MYERS SQUIBB COMPANY-BMS-2017-068967

PATIENT
  Sex: Female

DRUGS (1)
  1. ELIQUIS [Suspect]
     Active Substance: APIXABAN
     Indication: CEREBROVASCULAR ACCIDENT PROPHYLAXIS
     Dosage: 5 MG, BID
     Route: 048

REACTIONS (8)
  - Visual impairment [Unknown]
  - Stress [Unknown]
  - Hypersensitivity [Unknown]
  - Cough [Not Recovered/Not Resolved]
  - Musculoskeletal pain [Unknown]
  - Nausea [Unknown]
  - Decreased appetite [Unknown]
  - Eye discharge [Unknown]
